FAERS Safety Report 5138047-2 (Version None)
Quarter: 2006Q4

REPORT INFORMATION
  Report Type: 
  Country: None (occurrence: None)
  Receive Date: 20061030
  Receipt Date: 20060406
  Transmission Date: 20070319
  Serious: No
  Sender: FDA-Public Use
  Company Number: US-GLAXOSMITHKLINE-A0600784A

PATIENT
  Age: 79 Year
  Sex: Male

DRUGS (9)
  1. ADVAIR HFA [Suspect]
     Indication: ASTHMA
     Dosage: 1PUFF TWICE PER DAY
     Route: 055
     Dates: start: 20060401
  2. FUROSEMIDE [Concomitant]
  3. ACTOS [Concomitant]
  4. GLIMEPIRIDE [Concomitant]
  5. TOPROL-XL [Concomitant]
  6. POTASSIUM ACETATE [Concomitant]
  7. AVALIDE [Concomitant]
  8. NORVASC [Concomitant]
  9. ZOCOR [Concomitant]

REACTIONS (2)
  - DRUG INEFFECTIVE [None]
  - DYSPHONIA [None]
